FAERS Safety Report 9591827 (Version 1)
Quarter: 2013Q4

REPORT INFORMATION
  Report Type: Spontaneous
  Country: US (occurrence: US)
  Receive Date: 20131004
  Receipt Date: 20131004
  Transmission Date: 20140711
  Serious: No
  Sender: FDA-Public Use
  Company Number: US-AMGEN-USASP2012082947

PATIENT
  Age: 62 Year
  Sex: Female
  Weight: 53.52 kg

DRUGS (10)
  1. ENBREL [Suspect]
     Indication: RHEUMATOID ARTHRITIS
     Dosage: 50 MG, QWK
     Route: 058
  2. EVISTA [Concomitant]
     Dosage: 60 MG, UNK
     Route: 048
  3. SYNTHROID [Concomitant]
     Dosage: 25 MUG, UNK
     Route: 048
  4. KETOPROFEN [Concomitant]
     Dosage: 50 MG, UNK
     Route: 048
  5. FISH OIL [Concomitant]
     Dosage: UNK
     Route: 048
  6. FLEXERIL                           /00428402/ [Concomitant]
     Dosage: 5 MG, UNK
     Route: 048
  7. MULTIVITAMINS, PLAIN [Concomitant]
     Dosage: UNK
     Route: 048
  8. CALCIUM [Concomitant]
     Dosage: UNK
     Route: 048
  9. CARTIA XT [Concomitant]
     Dosage: 120 UNK PER 24 HR
     Route: 048
  10. WELLBUTRIN [Concomitant]
     Dosage: 75 MG, UNK
     Route: 048

REACTIONS (1)
  - Injection site pain [Unknown]
